FAERS Safety Report 8386339-6 (Version None)
Quarter: 2012Q2

REPORT INFORMATION
  Report Type: 
  Country: None (occurrence: None)
  Receive Date: 20120525
  Receipt Date: 20120420
  Transmission Date: 20120825
  Serious: No
  Sender: FDA-Public Use
  Company Number: US-VERTEX PHARMACEUTICALS INC.-AE-2012-005724

PATIENT

DRUGS (1)
  1. KALYDECO [Suspect]
     Indication: CYSTIC FIBROSIS

REACTIONS (10)
  - OFF LABEL USE [None]
  - PRODUCTIVE COUGH [None]
  - FATIGUE [None]
  - RHINORRHOEA [None]
  - ABDOMINAL PAIN UPPER [None]
  - GASTROINTESTINAL SOUNDS ABNORMAL [None]
  - LUNG DISORDER [None]
  - FEELING ABNORMAL [None]
  - PAIN [None]
  - ASTHMA [None]
